FAERS Safety Report 17108794 (Version 2)
Quarter: 2020Q1

REPORT INFORMATION
  Report Type: Spontaneous
  Country: CA (occurrence: CA)
  Receive Date: 20191203
  Receipt Date: 20200317
  Transmission Date: 20200409
  Serious: Yes (Other)
  Sender: FDA-Public Use
  Company Number: CA-ALLERGAN-1949274US

PATIENT
  Sex: Female
  Weight: 61.22 kg

DRUGS (1)
  1. LOESTRIN NOS [Suspect]
     Active Substance: ETHINYL ESTRADIOL\NORETHINDRONE ACETATE
     Indication: CONTRACEPTION
     Dosage: UNK UNK, QD
     Route: 048
     Dates: start: 20190401, end: 20190915

REACTIONS (3)
  - Abortion induced [Unknown]
  - Drug ineffective [Unknown]
  - Pregnancy [Unknown]
